FAERS Safety Report 13666335 (Version 1)
Quarter: 2017Q2

REPORT INFORMATION
  Report Type: Spontaneous
  Country: US (occurrence: US)
  Receive Date: 20170619
  Receipt Date: 20170619
  Transmission Date: 20170830
  Serious: No
  Sender: FDA-Public Use
  Company Number: US-ROCHE-1463445

PATIENT
  Sex: Female

DRUGS (2)
  1. XELODA [Suspect]
     Active Substance: CAPECITABINE
     Indication: COLON CANCER
     Dosage: 2 }500MG TABS
     Route: 065
     Dates: end: 20140407
  2. XELODA [Suspect]
     Active Substance: CAPECITABINE
     Dosage: 2}150 MG
     Route: 065
     Dates: end: 20140407

REACTIONS (1)
  - Skin discolouration [Not Recovered/Not Resolved]
